FAERS Safety Report 8859998 (Version 1)
Quarter: 2012Q4

REPORT INFORMATION
  Report Type: 
  Country: US (occurrence: US)
  Receive Date: 20121025
  Receipt Date: 20121025
  Transmission Date: 20130627
  Serious: Yes (Disabling, Other)
  Sender: FDA-Public Use
  Company Number: US-ABBOTT-12P-163-0995686-00

PATIENT

DRUGS (2)
  1. HUMIRA [Suspect]
     Indication: PRODUCT USED FOR UNKNOWN INDICATION
  2. REMICADE [Suspect]
     Indication: PRODUCT USED FOR UNKNOWN INDICATION

REACTIONS (8)
  - Brain injury [Unknown]
  - Multiple sclerosis [Unknown]
  - Vertigo [Unknown]
  - Hypoaesthesia [Unknown]
  - Aphasia [Unknown]
  - Dysgraphia [Unknown]
  - Impaired driving ability [Unknown]
  - Impaired work ability [Unknown]
